FAERS Safety Report 6432101-0 (Version None)
Quarter: 2009Q4

REPORT INFORMATION
  Report Type: 
  Country: None (occurrence: None)
  Receive Date: 20091109
  Receipt Date: 20091026
  Transmission Date: 20100525
  Serious: Yes (Other)
  Sender: FDA-Public Use
  Company Number: PHHY2009JP47212

PATIENT
  Age: 59 Year
  Sex: Female

DRUGS (2)
  1. LOCHOL [Suspect]
     Indication: HYPERCHOLESTEROLAEMIA
     Dosage: 30 MG/DAY
     Route: 048
     Dates: start: 20090509, end: 20090101
  2. LOCHOL [Suspect]
     Dosage: 30 MG/DAY
     Route: 048
     Dates: start: 20091005, end: 20091001

REACTIONS (5)
  - ABDOMINAL PAIN UPPER [None]
  - CHOLELITHIASIS [None]
  - CHOLELITHOTOMY [None]
  - CHROMATURIA [None]
  - PYREXIA [None]
